FAERS Safety Report 8664322 (Version 6)
Quarter: 2013Q1

REPORT INFORMATION
  Report Type: Report from Study
  Country: US (occurrence: US)
  Receive Date: 20120713
  Receipt Date: 20130320
  Transmission Date: 20140127
  Serious: Yes (Other)
  Sender: FDA-Public Use
  Company Number: US-ABBOTT-12P-163-0953456-00

PATIENT
  Age: 29 Year
  Sex: Female
  Weight: 95.34 kg

DRUGS (13)
  1. HUMIRA 40 MG/0.8 ML PEN [Suspect]
     Indication: PSORIASIS
     Dates: start: 20110210, end: 20120615
  2. HUMIRA 40 MG/0.8 ML PEN [Suspect]
     Indication: PSORIATIC ARTHROPATHY
  3. HUMIRA 40 MG/0.8 ML PEN [Suspect]
     Indication: PSORIASIS
  4. ALPRAZOLAM [Concomitant]
     Indication: PRODUCT USED FOR UNKNOWN INDICATION
  5. CITALOPRAM [Concomitant]
     Indication: PRODUCT USED FOR UNKNOWN INDICATION
  6. ZOLPIDEM [Concomitant]
     Indication: PRODUCT USED FOR UNKNOWN INDICATION
     Dosage: QHS
  7. CELEBREX [Concomitant]
     Indication: PRODUCT USED FOR UNKNOWN INDICATION
  8. AMBIEN [Concomitant]
     Indication: INSOMNIA
     Dates: start: 201212
  9. CELEXA [Concomitant]
     Indication: DEPRESSION
  10. CELEXA [Concomitant]
     Indication: AFFECTIVE DISORDER
  11. NECON [Concomitant]
     Indication: CONTRACEPTION
     Dosage: 1/35 1 DAILY
  12. XANAX [Concomitant]
     Indication: HYPERTENSION
  13. BENADRYL [Concomitant]
     Indication: SEASONAL ALLERGY

REACTIONS (24)
  - Cervical dysplasia [Unknown]
  - Back injury [Unknown]
  - Abdominal pain [Unknown]
  - Pelvic inflammatory disease [Unknown]
  - Upper respiratory tract infection [Recovered/Resolved]
  - Psoriatic arthropathy [Not Recovered/Not Resolved]
  - Gait disturbance [Not Recovered/Not Resolved]
  - Arthritis [Not Recovered/Not Resolved]
  - Psoriasis [Not Recovered/Not Resolved]
  - Local swelling [Not Recovered/Not Resolved]
  - Joint swelling [Not Recovered/Not Resolved]
  - Pain [Unknown]
  - Insomnia [Unknown]
  - Sinusitis [Unknown]
  - Arthritis [Unknown]
  - Rash [Unknown]
  - Road traffic accident [Unknown]
  - Temporomandibular joint syndrome [Unknown]
  - Folliculitis [Unknown]
  - Arthritis [Unknown]
  - Hypophagia [Unknown]
  - Activities of daily living impaired [Unknown]
  - Musculoskeletal pain [Unknown]
  - Muscle spasms [Unknown]
